FAERS Safety Report 22212401 (Version 1)
Quarter: 2023Q2

REPORT INFORMATION
  Report Type: Spontaneous
  Country: US (occurrence: None)
  Receive Date: 20230411
  Receipt Date: 20230411
  Transmission Date: 20230722
  Serious: No
  Sender: FDA-Public Use
  Company Number: None

PATIENT
  Age: 62 Year
  Sex: Female

DRUGS (1)
  1. TACROLIMUS [Suspect]
     Active Substance: TACROLIMUS
     Dosage: FREQUENCY : DAILY;?
     Route: 048

REACTIONS (16)
  - Tendonitis [None]
  - Arthralgia [None]
  - Arthralgia [None]
  - Dizziness [None]
  - Syncope [None]
  - Dizziness [None]
  - Headache [None]
  - Eye pain [None]
  - Ocular hyperaemia [None]
  - Pain in jaw [None]
  - Dyspnoea [None]
  - Chest pain [None]
  - Abdominal pain upper [None]
  - Pruritus [None]
  - Paraesthesia [None]
  - Nightmare [None]

NARRATIVE: CASE EVENT DATE: 20230411
